FAERS Safety Report 5414310-2 (Version None)
Quarter: 2007Q3

REPORT INFORMATION
  Report Type: 
  Country: None (occurrence: None)
  Receive Date: 20070814
  Receipt Date: 20070804
  Transmission Date: 20080115
  Serious: Yes (Hospitalization, Disabling, Other)
  Sender: FDA-Public Use
  Company Number: US-PFIZER INC-2007065409

PATIENT
  Sex: Female
  Weight: 82.1 kg

DRUGS (11)
  1. LIPITOR [Suspect]
     Indication: BLOOD CHOLESTEROL INCREASED
  2. ALTACE [Concomitant]
  3. TOPROL-XL [Concomitant]
  4. TRICOR [Concomitant]
  5. ZETIA [Concomitant]
  6. WARFARIN SODIUM [Concomitant]
  7. NORVASC [Concomitant]
  8. HUMULIN 70/30 [Concomitant]
  9. ANASTROZOLE [Concomitant]
  10. CENTRUM SILVER [Concomitant]
  11. ALL OTHER THERAPEUTIC PRODUCTS [Concomitant]

REACTIONS (10)
  - ANGIOPLASTY [None]
  - ARTHRALGIA [None]
  - BREAST CANCER [None]
  - BREAST LUMP REMOVAL [None]
  - CHEST PAIN [None]
  - CORONARY ARTERIAL STENT INSERTION [None]
  - INFECTION [None]
  - JOINT SWELLING [None]
  - MACULAR DEGENERATION [None]
  - MULTIPLE FRACTURES [None]
